FAERS Safety Report 4956996-2 (Version None)
Quarter: 2006Q1

REPORT INFORMATION
  Report Type: 
  Country: None (occurrence: None)
  Receive Date: 20060127
  Receipt Date: 20041220
  Transmission Date: 20060701
  Serious: Yes (Hospitalization)
  Sender: FDA-Public Use
  Company Number: 04-12-1771

PATIENT
  Age: 39 Year
  Sex: Female

DRUGS (8)
  1. CLOZAPINE [Suspect]
     Indication: SCHIZOPHRENIA, PARANOID TYPE
     Dosage: 25MG, BID, ORAL
     Route: 048
     Dates: start: 20011001
  2. HALDOL SOLUTAB [Concomitant]
  3. DEPAKOTE [Concomitant]
  4. COGENTIN [Concomitant]
  5. ATENOLOL [Concomitant]
  6. DILANTIN [Concomitant]
  7. METFORMIN [Concomitant]
  8. GLYBURIDE [Concomitant]

REACTIONS (1)
  - PSYCHOTIC DISORDER [None]
